FAERS Safety Report 23306607 (Version 2)
Quarter: 2023Q4

REPORT INFORMATION
  Report Type: Spontaneous
  Country: US (occurrence: US)
  Receive Date: 20231218
  Receipt Date: 20231222
  Transmission Date: 20240109
  Serious: No
  Sender: FDA-Public Use
  Company Number: US-AMGEN-USASP2023223782

PATIENT
  Sex: Male

DRUGS (7)
  1. IMLYGIC [Suspect]
     Active Substance: TALIMOGENE LAHERPAREPVEC
     Indication: Malignant melanoma
     Dosage: UNK, Q2WK, 8 TO 15 DIFFERENT SHOTS IN MY SCALP EACH TIME/ EXCEPT THERE WAS A THREE WEEK DELAY B/W FI
     Route: 026
  2. OPDUALAG [Concomitant]
     Active Substance: NIVOLUMAB\RELATLIMAB-RMBW
     Dosage: UNK, QMO
  3. TISAGENLECLEUCEL [Concomitant]
     Active Substance: TISAGENLECLEUCEL
  4. AXICABTAGENE CILOLEUCEL [Concomitant]
     Active Substance: AXICABTAGENE CILOLEUCEL
  5. BREXUCABTAGENE AUTOLEUCEL [Concomitant]
     Active Substance: BREXUCABTAGENE AUTOLEUCEL
  6. YERVOY [Concomitant]
     Active Substance: IPILIMUMAB
  7. TYLENOL [Concomitant]
     Active Substance: ACETAMINOPHEN
     Dosage: UNK, EVERY 4 HOURS

REACTIONS (1)
  - Influenza [Unknown]
